FAERS Safety Report 10014850 (Version 1)
Quarter: 2014Q1

REPORT INFORMATION
  Report Type: Spontaneous
  Country: US (occurrence: US)
  Receive Date: 20140317
  Receipt Date: 20140317
  Transmission Date: 20141002
  Serious: No
  Sender: FDA-Public Use
  Company Number: US-TEVA-469013USA

PATIENT
  Sex: Male

DRUGS (2)
  1. CLARAVIS [Suspect]
     Indication: ACNE
     Route: 048
  2. AMNESTEEM [Suspect]

REACTIONS (3)
  - Drug ineffective [Unknown]
  - Acne [Unknown]
  - Lip dry [Unknown]
